FAERS Safety Report 10056043 (Version 1)
Quarter: 2014Q2

REPORT INFORMATION
  Report Type: Spontaneous
  Country: HR (occurrence: None)
  Receive Date: 20140401
  Receipt Date: 20140401
  Transmission Date: 20141212
  Serious: Yes (Other)
  Sender: FDA-Public Use
  Company Number: B0978927A

PATIENT
  Age: 81 Year
  Sex: Male

DRUGS (12)
  1. PAROXETINE [Suspect]
     Indication: DEPRESSION
     Dates: start: 20131207, end: 20131208
  2. OXAZEPAM [Concomitant]
  3. THEOPHYLLINE [Concomitant]
  4. CEFIXIME [Concomitant]
  5. POTASSIUM CHLORIDE [Concomitant]
  6. IPRATROPIUM BROMIDE [Concomitant]
  7. SALBUTAMOL SULPHATE [Concomitant]
  8. LOSARTAN POTASSIUM [Concomitant]
  9. ESOMEPRAZOLE [Concomitant]
  10. DICLOFENAC [Concomitant]
  11. FRUSEMIDE [Concomitant]
  12. INSULIN ASPART [Concomitant]

REACTIONS (2)
  - Disorientation [None]
  - Muscle spasms [None]
